FAERS Safety Report 24202982 (Version 4)
Quarter: 2025Q3

REPORT INFORMATION
  Report Type: Spontaneous
  Country: CA (occurrence: CA)
  Receive Date: 20240813
  Receipt Date: 20250821
  Transmission Date: 20251021
  Serious: Yes (Hospitalization, Other)
  Sender: INTERCEPT PHARMACEUTICALS
  Company Number: CA-ADVANZ PHARMA-202407006510

PATIENT
  Sex: Female

DRUGS (3)
  1. OCALIVA [Suspect]
     Active Substance: OBETICHOLIC ACID
     Indication: Primary biliary cholangitis
     Route: 048
     Dates: start: 20200603
  2. OCALIVA [Suspect]
     Active Substance: OBETICHOLIC ACID
     Route: 048
  3. OCALIVA [Suspect]
     Active Substance: OBETICHOLIC ACID
     Dosage: 10 MILLIGRAM, QD
     Route: 048

REACTIONS (6)
  - Localised infection [Unknown]
  - Sepsis [Unknown]
  - Cellulitis [Unknown]
  - Confusional state [Unknown]
  - Diarrhoea [Unknown]
  - Therapy interrupted [Unknown]
